FAERS Safety Report 5361530-1 (Version None)
Quarter: 2007Q2

REPORT INFORMATION
  Report Type: 
  Country: None (occurrence: None)
  Receive Date: 20070619
  Receipt Date: 20070611
  Transmission Date: 20071010
  Serious: Yes (Hospitalization)
  Sender: FDA-Public Use
  Company Number: PHBS2007JP09858

PATIENT
  Age: 65 Year
  Sex: Female

DRUGS (1)
  1. ZOMETA [Suspect]
     Indication: METASTASES TO BONE
     Route: 042

REACTIONS (4)
  - OSTEONECROSIS [None]
  - PAIN IN JAW [None]
  - SURGERY [None]
  - TOOTH EXTRACTION [None]
